FAERS Safety Report 15984764 (Version 2)
Quarter: 2019Q1

REPORT INFORMATION
  Report Type: Spontaneous
  Country: JP (occurrence: JP)
  Receive Date: 20190220
  Receipt Date: 20190226
  Transmission Date: 20190418
  Serious: Yes (Hospitalization)
  Sender: FDA-Public Use
  Company Number: JP-BAUSCH-BL-2019-005153

PATIENT
  Age: 8 Year
  Sex: Female

DRUGS (2)
  1. TALION (BEPOTASTINE BESILATE) [Suspect]
     Active Substance: BEPOTASTINE BESILATE
     Indication: SEASONAL ALLERGY
     Route: 048
  2. TALION (BEPOTASTINE BESILATE) [Suspect]
     Active Substance: BEPOTASTINE BESILATE
     Dosage: DOSE INCREASED
     Route: 048
     Dates: start: 201703

REACTIONS (1)
  - Nephrotic syndrome [Recovered/Resolved]

NARRATIVE: CASE EVENT DATE: 201703
